FAERS Safety Report 6702158-8 (Version None)
Quarter: 2010Q2

REPORT INFORMATION
  Report Type: 
  Country: None (occurrence: None)
  Receive Date: 20100429
  Receipt Date: 20100426
  Transmission Date: 20101027
  Serious: Yes (Death)
  Sender: FDA-Public Use
  Company Number: PHHY2010NL26678

PATIENT
  Sex: Male

DRUGS (1)
  1. ZOMETA [Suspect]
     Dosage: 4 MG/ 5 ML
     Route: 042
     Dates: end: 20100324

REACTIONS (2)
  - ASTHENIA [None]
  - MYOCARDIAL INFARCTION [None]
